FAERS Safety Report 19987171 (Version 1)
Quarter: 2021Q4

REPORT INFORMATION
  Report Type: Spontaneous
  Country: US (occurrence: US)
  Receive Date: 20211022
  Receipt Date: 20211022
  Transmission Date: 20220303
  Serious: Yes (Other)
  Sender: FDA-Public Use
  Company Number: US-BAYER-2021A235041

PATIENT
  Age: 63 Year
  Sex: Female

DRUGS (1)
  1. MIRENA [Suspect]
     Active Substance: LEVONORGESTREL
     Indication: Endometrial hyperplasia
     Dosage: 20 ?G, CONT
     Route: 015
     Dates: start: 20201006

REACTIONS (4)
  - Device dislocation [Not Recovered/Not Resolved]
  - Genital haemorrhage [None]
  - Vulvovaginal pain [None]
  - Off label use of device [None]

NARRATIVE: CASE EVENT DATE: 20201006
